FAERS Safety Report 26188827 (Version 1)
Quarter: 2025Q4

REPORT INFORMATION
  Report Type: Spontaneous
  Country: US (occurrence: US)
  Receive Date: 20251222
  Receipt Date: 20251222
  Transmission Date: 20260117
  Serious: No
  Sender: CELLTRION
  Company Number: US-CELLTRION INC.-2025US025000

PATIENT

DRUGS (6)
  1. RITUXIMAB [Suspect]
     Active Substance: RITUXIMAB
     Indication: Immune thrombocytopenia
     Dosage: TWO DOSES/SECOND-LINE THERAPY
  2. TACROLIMUS [Concomitant]
     Active Substance: TACROLIMUS
     Indication: Immunosuppressant drug therapy
     Dosage: 1 MG
  3. MYCOPHENOLIC ACID [Concomitant]
     Active Substance: MYCOPHENOLIC ACID
     Indication: Immunosuppressant drug therapy
     Dosage: 250 MG
  4. PREDNISONE [Concomitant]
     Active Substance: PREDNISONE
     Indication: Immunosuppressant drug therapy
     Dosage: FOUR-MONTH PREDNISONE TAPER
  5. CHOLESTYRAMINE [Concomitant]
     Active Substance: CHOLESTYRAMINE
     Indication: Chronic hepatic failure
     Dosage: 4 MG, DAILY
  6. URSODIOL [Concomitant]
     Active Substance: URSODIOL
     Indication: Chronic hepatic failure
     Dosage: 500 MG, TWICE DAILY

REACTIONS (1)
  - Drug ineffective for unapproved indication [Unknown]
